FAERS Safety Report 15080969 (Version 1)
Quarter: 2018Q2

REPORT INFORMATION
  Report Type: Spontaneous
  Country: US (occurrence: US)
  Receive Date: 20180628
  Receipt Date: 20180628
  Transmission Date: 20180711
  Serious: No
  Sender: FDA-Public Use
  Company Number: US-GLENMARK PHARMACEUTICALS-2018GMK032457

PATIENT

DRUGS (2)
  1. ONDANSETRON ORALLY DISINTEGRATING TABLETS [Suspect]
     Active Substance: ONDANSETRON
     Indication: VOMITING
     Dosage: UNK
     Route: 065
  2. ONDANSETRON ORALLY DISINTEGRATING TABLETS [Suspect]
     Active Substance: ONDANSETRON
     Indication: DIARRHOEA

REACTIONS (1)
  - Product use in unapproved indication [Unknown]
